FAERS Safety Report 6030499-9 (Version None)
Quarter: 2009Q1

REPORT INFORMATION
  Report Type: 
  Country: None (occurrence: None)
  Receive Date: 20090106
  Receipt Date: 20090106
  Transmission Date: 20090719
  Serious: Yes (Hospitalization, Other)
  Sender: FDA-Public Use
  Company Number: None

PATIENT
  Age: 64 Year
  Sex: Female
  Weight: 54.4316 kg

DRUGS (3)
  1. LYRICA [Suspect]
     Indication: MONOPLEGIA
     Dosage: PO ABOUT 3 TO 4 WEEKS
     Route: 048
  2. LYRICA [Suspect]
     Indication: NERVE INJURY
     Dosage: PO ABOUT 3 TO 4 WEEKS
     Route: 048
  3. LYRICA [Suspect]
     Indication: PAIN
     Dosage: PO ABOUT 3 TO 4 WEEKS
     Route: 048

REACTIONS (4)
  - DYSKINESIA [None]
  - FATIGUE [None]
  - MOVEMENT DISORDER [None]
  - OBSESSIVE-COMPULSIVE DISORDER [None]
